FAERS Safety Report 23185902 (Version 2)
Quarter: 2023Q4

REPORT INFORMATION
  Report Type: Spontaneous
  Country: US (occurrence: US)
  Receive Date: 20231115
  Receipt Date: 20231206
  Transmission Date: 20240110
  Serious: Yes (Other)
  Sender: FDA-Public Use
  Company Number: US-BRISTOL-MYERS SQUIBB COMPANY-2023-161035

PATIENT
  Age: 69 Year
  Sex: Male

DRUGS (1)
  1. ZEPOSIA [Suspect]
     Active Substance: OZANIMOD HYDROCHLORIDE
     Indication: Product used for unknown indication
     Dosage: FREQUENCY: 1 CAPSULE BY MOUTH ONCE DAILY
     Route: 048

REACTIONS (3)
  - Multiple sclerosis [Unknown]
  - Arthritis [Unknown]
  - Rosacea [Unknown]
